FAERS Safety Report 11695946 (Version 3)
Quarter: 2017Q2

REPORT INFORMATION
  Report Type: Spontaneous
  Country: JP (occurrence: JP)
  Receive Date: 20151104
  Receipt Date: 20170606
  Transmission Date: 20170829
  Serious: Yes (Life-Threatening, Hospitalization, Other)
  Sender: FDA-Public Use
  Company Number: JP-SUN PHARMACEUTICAL INDUSTRIES LTD-2015RR-105207

PATIENT

DRUGS (2)
  1. MIRTAZAPINE. [Suspect]
     Active Substance: MIRTAZAPINE
     Indication: PRODUCT USED FOR UNKNOWN INDICATION
     Dosage: 66-TABLET (15MG/TABLET)
     Route: 048
  2. CHLORPROMAZINE. [Suspect]
     Active Substance: CHLORPROMAZINE
     Indication: PRODUCT USED FOR UNKNOWN INDICATION
     Dosage: 60-TABLET (50MG/TABLET)
     Route: 048

REACTIONS (3)
  - Coma [Recovered/Resolved]
  - Overdose [Recovered/Resolved]
  - Cardiac arrest [Recovered/Resolved]
